FAERS Safety Report 7953598-0 (Version None)
Quarter: 2011Q4

REPORT INFORMATION
  Report Type: 
  Country: None (occurrence: None)
  Receive Date: 20111202
  Receipt Date: 20111121
  Transmission Date: 20120403
  Serious: Yes (Hospitalization, Other)
  Sender: FDA-Public Use
  Company Number: US-JNJFOC-20111109283

PATIENT
  Sex: Female
  Weight: 56.7 kg

DRUGS (7)
  1. REMICADE [Suspect]
     Route: 042
     Dates: start: 20100701, end: 20110701
  2. REMICADE [Suspect]
     Route: 042
     Dates: start: 20110701
  3. REMICADE [Suspect]
     Route: 042
     Dates: start: 20100501, end: 20100701
  4. METHOTREXATE [Suspect]
     Indication: PRODUCT USED FOR UNKNOWN INDICATION
  5. ZYRTEC-D 12 HOUR [Concomitant]
     Indication: SEASONAL ALLERGY
     Route: 048
  6. REMICADE [Suspect]
     Indication: COLITIS ULCERATIVE
     Route: 042
     Dates: start: 20111104
  7. LIALDA [Concomitant]
     Indication: COLITIS ULCERATIVE
     Dosage: 1.5GMS/TABLET/0.375GMS/4 TABLETS DAILY
     Route: 048

REACTIONS (12)
  - EATING DISORDER [None]
  - ABDOMINAL PAIN UPPER [None]
  - DRUG INEFFECTIVE [None]
  - OTITIS MEDIA [None]
  - HEADACHE [None]
  - PAIN IN JAW [None]
  - COLITIS ULCERATIVE [None]
  - SWELLING [None]
  - URTICARIA [None]
  - MALAISE [None]
  - EAR PAIN [None]
  - NAUSEA [None]
